FAERS Safety Report 6074106-8 (Version None)
Quarter: 2009Q1

REPORT INFORMATION
  Report Type: 
  Country: None (occurrence: None)
  Receive Date: 20090211
  Receipt Date: 20090206
  Transmission Date: 20090719
  Serious: Yes (Life-Threatening)
  Sender: FDA-Public Use
  Company Number: B0555061A

PATIENT
  Age: 91 Year
  Sex: Female

DRUGS (5)
  1. ARIXTRA [Suspect]
     Indication: THROMBOSIS PROPHYLAXIS
     Dosage: 1.5MG PER DAY
     Route: 058
     Dates: start: 20090109, end: 20090114
  2. THREENOFEN [Suspect]
     Indication: ANALGESIA
     Dosage: 60MG THREE TIMES PER DAY
     Route: 048
     Dates: start: 20090109, end: 20090114
  3. ADEFURONIC [Concomitant]
     Dosage: 12.5MG PER DAY
     Route: 054
     Dates: start: 20090108
  4. ISALON [Concomitant]
     Dosage: 300MG PER DAY
     Route: 048
     Dates: start: 20090109, end: 20090114
  5. UNKNOWN DRUG [Concomitant]

REACTIONS (4)
  - BLOOD PRESSURE DECREASED [None]
  - GASTRIC CANCER [None]
  - GASTRIC ULCER [None]
  - HAEMATEMESIS [None]
